FAERS Safety Report 5314795-6 (Version None)
Quarter: 2007Q2

REPORT INFORMATION
  Report Type: 
  Country: None (occurrence: None)
  Receive Date: 20070502
  Receipt Date: 20070427
  Transmission Date: 20071010
  Serious: Yes (Hospitalization)
  Sender: FDA-Public Use
  Company Number: JP-GLAXOSMITHKLINE-B0460276A

PATIENT
  Age: 71 Year
  Sex: Male
  Weight: 59 kg

DRUGS (12)
  1. VALTREX [Suspect]
     Indication: HERPES ZOSTER
     Route: 048
     Dates: start: 20070221, end: 20070225
  2. ASPIRIN [Concomitant]
     Indication: THROMBOSIS
     Dosage: 100MG PER DAY
     Route: 048
  3. TICLOPIDINE HCL [Concomitant]
     Indication: THROMBOSIS
     Dosage: 200MG PER DAY
     Route: 048
  4. RHYTHMY [Concomitant]
     Indication: INSOMNIA
     Dosage: 2MG PER DAY
     Route: 048
  5. RISUMIC [Concomitant]
     Dosage: 10MG PER DAY
     Route: 048
  6. LOXONIN [Concomitant]
     Indication: BACK PAIN
     Dosage: 120MG PER DAY
     Route: 048
     Dates: start: 20070226
  7. MUCOSTA [Concomitant]
     Indication: GASTRITIS
     Dosage: 200MG PER DAY
     Route: 048
     Dates: end: 20070226
  8. ALOSENN [Concomitant]
     Indication: CONSTIPATION
     Dosage: .5MG PER DAY
     Route: 048
     Dates: end: 20070226
  9. MAGNESIUM OXIDE [Concomitant]
     Indication: CONSTIPATION
     Dosage: .2G PER DAY
     Route: 048
  10. TANKARU [Concomitant]
     Dosage: 1500MG PER DAY
     Route: 048
     Dates: end: 20070226
  11. ESPO [Concomitant]
     Dosage: 3000IU PER DAY
     Route: 042
  12. HEMODIALYSIS [Concomitant]
     Dates: start: 20070226

REACTIONS (3)
  - DYSARTHRIA [None]
  - HAEMODIALYSIS [None]
  - MUSCULAR WEAKNESS [None]
